FAERS Safety Report 7378736-2 (Version None)
Quarter: 2011Q1

REPORT INFORMATION
  Report Type: 
  Country: None (occurrence: None)
  Receive Date: 20110328
  Receipt Date: 20110318
  Transmission Date: 20110831
  Serious: Yes (Other)
  Sender: FDA-Public Use
  Company Number: US-ASTRAZENECA-2011SE15504

PATIENT
  Sex: Male

DRUGS (3)
  1. ADVAIR DISKUS 100/50 [Suspect]
     Dosage: 250/50 MCG
     Route: 055
     Dates: start: 20101201
  2. SYMBICORT [Suspect]
     Dosage: UNKNOWN
     Route: 055
  3. VENTOLIN [Suspect]
     Route: 055
     Dates: start: 20100101

REACTIONS (4)
  - ORAL CANDIDIASIS [None]
  - OVERDOSE [None]
  - DIZZINESS [None]
  - LOSS OF CONSCIOUSNESS [None]
